FAERS Safety Report 8247039-6 (Version None)
Quarter: 2012Q1

REPORT INFORMATION
  Report Type: 
  Country: None (occurrence: None)
  Receive Date: 20120316
  Receipt Date: 20090413
  Transmission Date: 20120608
  Serious: Yes (Other)
  Sender: FDA-Public Use
  Company Number: PHEH2009US03850

PATIENT
  Age: 63 Year
  Sex: Male
  Weight: 126.5 kg

DRUGS (9)
  1. TEKTURNA [Suspect]
     Dosage: 150 MG, QD, ORAL, 300 MG, QD, ORAL
     Route: 048
     Dates: start: 20081223, end: 20090121
  2. TEKTURNA [Suspect]
     Dosage: 150 MG, QD, ORAL, 300 MG, QD, ORAL
     Route: 048
     Dates: start: 20090121, end: 20090402
  3. ASPIRIN (ACETYLSALICYILIC ACID) [Concomitant]
  4. DIOVAN [Concomitant]
  5. LOVAZA [Concomitant]
  6. HYDROCHLOROTHIAZIDE [Concomitant]
  7. COREG [Concomitant]
  8. CATAPRES-TT-3 (CLONIDINE) [Concomitant]
  9. PRAVASTATIN [Concomitant]

REACTIONS (1)
  - BLOOD PRESSURE INCREASED [None]
